FAERS Safety Report 14392214 (Version 3)
Quarter: 2018Q1

REPORT INFORMATION
  Report Type: Spontaneous
  Country: JP (occurrence: JP)
  Receive Date: 20180116
  Receipt Date: 20180213
  Transmission Date: 20180509
  Serious: Yes (Death)
  Sender: FDA-Public Use
  Company Number: JP-UNITED THERAPEUTICS-UNT-2017-016053

PATIENT
  Age: 25 Year
  Sex: Female
  Weight: 43 kg

DRUGS (17)
  1. REMODULIN [Suspect]
     Active Substance: TREPROSTINIL
     Dosage: 15 MCL/HR
     Route: 058
     Dates: start: 20171117
  2. VENTAVIS [Concomitant]
     Active Substance: ILOPROST
     Dosage: UNK
     Dates: start: 20160908
  3. CALONAL [Concomitant]
     Active Substance: ACETAMINOPHEN
     Dosage: 200 MG, UNK
     Route: 048
  4. SPIRONOLACTONE. [Concomitant]
     Active Substance: SPIRONOLACTONE
     Indication: PULMONARY ARTERIAL HYPERTENSION
     Dosage: 50 MG, TOTAL DAILY DOSE
     Route: 048
     Dates: start: 20110306
  5. TADALAFIL [Concomitant]
     Active Substance: TADALAFIL
     Indication: PULMONARY ARTERIAL HYPERTENSION
     Dosage: 40 MG, TOTAL DAILY DOSE
     Route: 048
     Dates: start: 20130211
  6. MACITENTAN [Concomitant]
     Active Substance: MACITENTAN
     Indication: PULMONARY ARTERIAL HYPERTENSION
     Dosage: 10 MG, TOTAL DAILY DOSE
     Route: 048
     Dates: start: 20160208
  7. REMODULIN [Suspect]
     Active Substance: TREPROSTINIL
     Dosage: 17 MCL/HR
     Route: 058
     Dates: start: 20171221
  8. CALONAL [Concomitant]
     Active Substance: ACETAMINOPHEN
     Dosage: 6 DF, UNK
     Route: 048
  9. FUROSEMIDE. [Concomitant]
     Active Substance: FUROSEMIDE
     Indication: PULMONARY ARTERIAL HYPERTENSION
     Dosage: 40 MG, TOTAL DAILY DOSE
     Route: 048
     Dates: start: 20110306
  10. VENTAVIS [Concomitant]
     Active Substance: ILOPROST
     Indication: PULMONARY ARTERIAL HYPERTENSION
     Dosage: UNK
     Dates: start: 20130530
  11. REMODULIN [Suspect]
     Active Substance: TREPROSTINIL
     Indication: PULMONARY ARTERIAL HYPERTENSION
     Dosage: 1 MCL/HR
     Route: 058
     Dates: start: 20171101
  12. ONETRAM [Suspect]
     Active Substance: TRAMADOL HYDROCHLORIDE
     Indication: PROPHYLAXIS
     Dosage: UNK
     Route: 048
  13. CALONAL [Concomitant]
     Active Substance: ACETAMINOPHEN
     Dosage: 180 MG/DAY
     Route: 048
  14. ZYPREXA [Concomitant]
     Active Substance: OLANZAPINE
     Indication: PRODUCT USED FOR UNKNOWN INDICATION
     Dosage: UNK
     Route: 048
  15. CALONAL [Concomitant]
     Active Substance: ACETAMINOPHEN
     Indication: PRODUCT USED FOR UNKNOWN INDICATION
     Dosage: 2 DF, UNK
     Route: 048
  16. DIGOXIN. [Concomitant]
     Active Substance: DIGOXIN
     Indication: PULMONARY ARTERIAL HYPERTENSION
     Dosage: 0.25 MG, TOTAL DAILY DOSE
     Route: 048
     Dates: start: 20110306
  17. LANSOPRAZOLE. [Concomitant]
     Active Substance: LANSOPRAZOLE
     Indication: PRODUCT USED FOR UNKNOWN INDICATION
     Dosage: UNK
     Route: 048

REACTIONS (10)
  - Infusion site warmth [Unknown]
  - Infusion site pain [Not Recovered/Not Resolved]
  - Depressed mood [Recovered/Resolved]
  - Asthenia [Unknown]
  - Pulmonary hypertensive crisis [Fatal]
  - Haemoptysis [Fatal]
  - Infusion site erythema [Unknown]
  - Appetite disorder [Unknown]
  - Nausea [Recovered/Resolved]
  - Infusion site swelling [Unknown]

NARRATIVE: CASE EVENT DATE: 201711
